FAERS Safety Report 16503249 (Version 3)
Quarter: 2019Q4

REPORT INFORMATION
  Report Type: Spontaneous
  Country: CA (occurrence: CA)
  Receive Date: 20190701
  Receipt Date: 20191115
  Transmission Date: 20200122
  Serious: Yes (Other)
  Sender: FDA-Public Use
  Company Number: CA-PFIZER INC-2019211407

PATIENT
  Age: 75 Year
  Sex: Female

DRUGS (7)
  1. LEVOTHYROXINE. [Concomitant]
     Active Substance: LEVOTHYROXINE
     Dosage: 100 UG, DAILY
     Route: 065
     Dates: start: 20130916
  2. TAMOXIFEN-TEVA [Concomitant]
     Active Substance: TAMOXIFEN
     Dosage: 20 MG, DAILY
     Route: 065
     Dates: start: 20130916
  3. RATIO-OXYCOCET [Concomitant]
     Active Substance: ACETAMINOPHEN\OXYCODONE HYDROCHLORIDE
     Dosage: 5/325MG PM (AT NIGHT) OR PRN (AS NEEDED)
     Route: 065
     Dates: start: 20130916
  4. PREDNISONE. [Concomitant]
     Active Substance: PREDNISONE
     Dosage: 10 MG, DAILY, (^HIGH DOSE^)
     Route: 065
  5. METFORMIN [Concomitant]
     Active Substance: METFORMIN HYDROCHLORIDE
     Dosage: 500 MG, 2X/DAY
     Route: 065
     Dates: start: 2013
  6. XELJANZ [Suspect]
     Active Substance: TOFACITINIB CITRATE
     Indication: RHEUMATOID ARTHRITIS
     Dosage: 5 MG, 2X/DAY
     Route: 048
     Dates: start: 20190521
  7. RABEPRAZOLE [Concomitant]
     Active Substance: RABEPRAZOLE
     Dosage: 20 MG, DAILY
     Route: 065
     Dates: start: 2013

REACTIONS (3)
  - Diarrhoea haemorrhagic [Unknown]
  - Product dose omission [Unknown]
  - Pain in extremity [Unknown]

NARRATIVE: CASE EVENT DATE: 201911
